FAERS Safety Report 7922839-8 (Version None)
Quarter: 2011Q4

REPORT INFORMATION
  Report Type: 
  Country: None (occurrence: None)
  Receive Date: 20111117
  Receipt Date: 20110125
  Transmission Date: 20120403
  Serious: No
  Sender: FDA-Public Use
  Company Number: US-AMGEN-USASP2011004514

PATIENT
  Age: 75 Year
  Sex: Female
  Weight: 58.957 kg

DRUGS (11)
  1. FOLIC ACID [Concomitant]
     Dosage: 1 MG, UNK
  2. LEVOTHYROXINE SODIUM [Concomitant]
     Dosage: UNK
  3. LORATADINE [Concomitant]
  4. CALCIUM [Concomitant]
     Dosage: UNK
  5. ENBREL [Suspect]
     Indication: PRODUCT USED FOR UNKNOWN INDICATION
     Dosage: 50 MG, QWK
     Route: 058
  6. VITAMIN D [Concomitant]
  7. EYEVITE [Concomitant]
  8. SERTRALINE HYDROCHLORIDE [Concomitant]
     Dosage: 25 MG, UNK
  9. METHOTREXATE [Concomitant]
     Dosage: 2.5 MG, UNK
  10. SIMVASTATIN [Concomitant]
     Dosage: 40 MG, UNK
  11. PHENYTOIN [Concomitant]
     Dosage: 100 MG, UNK

REACTIONS (3)
  - INJECTION SITE REACTION [None]
  - INJECTION SITE ERYTHEMA [None]
  - INJECTION SITE WARMTH [None]
